FAERS Safety Report 18098934 (Version 2)
Quarter: 2020Q3

REPORT INFORMATION
  Report Type: Spontaneous
  Country: US (occurrence: US)
  Receive Date: 20200731
  Receipt Date: 20200804
  Transmission Date: 20201103
  Serious: Yes (Hospitalization)
  Sender: FDA-Public Use
  Company Number: US-JNJFOC-20200734904

PATIENT
  Age: 51 Year
  Sex: Male
  Weight: 119.86 kg

DRUGS (13)
  1. INVEGA SUSTENNA [Suspect]
     Active Substance: PALIPERIDONE PALMITATE
  2. AMANTADINE. [Concomitant]
     Active Substance: AMANTADINE HYDROCHLORIDE
     Route: 048
     Dates: start: 20191114
  3. CLONAZEPAM. [Concomitant]
     Active Substance: CLONAZEPAM
  4. LITHIUM CARBONATE. [Concomitant]
     Active Substance: LITHIUM CARBONATE
     Dosage: 2 CAPSULES
     Dates: start: 20190116
  5. OLANZAPINE. [Concomitant]
     Active Substance: OLANZAPINE
     Dates: start: 20191106
  6. CLONAZEPAM. [Concomitant]
     Active Substance: CLONAZEPAM
  7. OLANZAPINE. [Concomitant]
     Active Substance: OLANZAPINE
     Dates: start: 20200602
  8. INVEGA SUSTENNA [Suspect]
     Active Substance: PALIPERIDONE PALMITATE
     Indication: BIPOLAR I DISORDER
     Route: 030
     Dates: start: 20190821
  9. BENZTROPINE. [Concomitant]
     Active Substance: BENZTROPINE
     Route: 048
     Dates: start: 20020502
  10. ALLOPURINOL. [Concomitant]
     Active Substance: ALLOPURINOL
     Route: 048
  11. TRAZODONE [Concomitant]
     Active Substance: TRAZODONE HYDROCHLORIDE
     Dosage: 2 TABLETS HS
     Dates: start: 20191130
  12. INVEGA SUSTENNA [Suspect]
     Active Substance: PALIPERIDONE PALMITATE
     Route: 030
     Dates: start: 20190605
  13. THIOTHIXENE                        /00099101/ [Concomitant]
     Active Substance: THIOTHIXENE
     Dosage: 1 CAP BID,  AND 3 CAP AT BED TIME
     Dates: start: 20191230

REACTIONS (6)
  - Respiratory failure [Unknown]
  - Encephalopathy [Unknown]
  - Thrombocytopenia [Unknown]
  - Suspected COVID-19 [Unknown]
  - Renal failure [Unknown]
  - Neuroleptic malignant syndrome [Recovered/Resolved]

NARRATIVE: CASE EVENT DATE: 20200701
